FAERS Safety Report 7834629-5 (Version None)
Quarter: 2011Q4

REPORT INFORMATION
  Report Type: 
  Country: None (occurrence: None)
  Receive Date: 20111024
  Receipt Date: 20110301
  Transmission Date: 20120403
  Serious: No
  Sender: FDA-Public Use
  Company Number: US-BAUSCH-2011BL001267

PATIENT
  Age: 24 Year
  Sex: Female

DRUGS (1)
  1. NEOMYCIN AND POLYMYXIN B SULFATES AND HYDROCORTISONE [Suspect]
     Route: 047
     Dates: start: 20110301, end: 20110301

REACTIONS (4)
  - EYE IRRITATION [None]
  - DRUG DISPENSING ERROR [None]
  - INCORRECT ROUTE OF DRUG ADMINISTRATION [None]
  - EYE PAIN [None]
